FAERS Safety Report 20719425 (Version 1)
Quarter: 2022Q2

REPORT INFORMATION
  Report Type: Report from Study
  Country: AR (occurrence: AR)
  Receive Date: 20220418
  Receipt Date: 20220418
  Transmission Date: 20220720
  Serious: Yes (Other)
  Sender: FDA-Public Use
  Company Number: AR-NOVARTISPH-NVSC2022AR082833

PATIENT
  Age: 16 Year
  Sex: Male
  Weight: 49.7 kg

DRUGS (2)
  1. TRAMETINIB [Suspect]
     Active Substance: TRAMETINIB
     Indication: Pain
     Dosage: 1.5 MG
     Route: 048
     Dates: start: 20220216, end: 20220302
  2. TRAMETINIB [Suspect]
     Active Substance: TRAMETINIB
     Indication: Neurofibroma
     Dosage: 1 MG
     Route: 065
     Dates: start: 20220314

REACTIONS (2)
  - Dermatitis acneiform [Recovering/Resolving]
  - Diarrhoea [Recovered/Resolved]

NARRATIVE: CASE EVENT DATE: 20220302
